FAERS Safety Report 8508021-4 (Version None)
Quarter: 2012Q2

REPORT INFORMATION
  Report Type: 
  Country: None (occurrence: None)
  Receive Date: 20120405
  Receipt Date: 20091020
  Transmission Date: 20120825
  Serious: Yes (Other)
  Sender: FDA-Public Use
  Company Number: PHEH2009US07813

PATIENT
  Age: 57 Year
  Sex: Female
  Weight: 56.7 kg

DRUGS (6)
  1. LISINOPRIL [Concomitant]
  2. LANTUS [Concomitant]
  3. SONATA [Concomitant]
  4. SIMVASTATIN [Concomitant]
  5. RECLAST [Suspect]
     Indication: OSTEOPOROSIS
     Dosage: 1X DOXSE, INTRAVENOUS
     Route: 042
     Dates: start: 20080601, end: 20080601
  6. CYMBALTA [Concomitant]

REACTIONS (4)
  - OSTEONECROSIS [None]
  - BONE DISORDER [None]
  - TOOTH EXTRACTION [None]
  - GINGIVAL DISORDER [None]
